FAERS Safety Report 14198708 (Version 3)
Quarter: 2018Q3

REPORT INFORMATION
  Report Type: Spontaneous
  Country: US (occurrence: US)
  Receive Date: 20171117
  Receipt Date: 20180703
  Transmission Date: 20181010
  Serious: No
  Sender: FDA-Public Use
  Company Number: US-PFIZER INC-2017494520

PATIENT
  Age: 61 Year
  Sex: Female
  Weight: 72.56 kg

DRUGS (9)
  1. DOCETAXEL. [Suspect]
     Active Substance: DOCETAXEL
     Indication: BREAST CANCER FEMALE
     Dosage: 135 MG, CYCLIC (EVERY 3 WEEKS FOR 6 CYCLES AT CYCLES 1,2,3 WAS 135 MG; CYCLE 4,5,6 WAS 110 MG)
     Dates: start: 20120702, end: 20121015
  2. CYCLOPHOSPHAMIDE. [Concomitant]
     Active Substance: CYCLOPHOSPHAMIDE
     Dosage: UNK
  3. ADRIAMYCIN [Concomitant]
     Active Substance: DOXORUBICIN HYDROCHLORIDE
     Dosage: UNK
  4. NEOSAR [Concomitant]
     Active Substance: CYCLOPHOSPHAMIDE
     Dosage: UNK
  5. DOXIL [Concomitant]
     Active Substance: DOXORUBICIN HYDROCHLORIDE
     Dosage: UNK
  6. TAXOTERE [Suspect]
     Active Substance: DOCETAXEL
     Dosage: 110 MG, CYCLIC (EVERY 3 WEEKS FOR 6 CYCLES AT CYCLES 1,2,3 WAS 135 MG; CYCLE 4,5,6 WAS 110 MG)
     Dates: start: 20120702, end: 20121015
  7. DOCETAXEL. [Suspect]
     Active Substance: DOCETAXEL
     Dosage: 110 MG, CYCLIC (EVERY 3 WEEKS FOR 6 CYCLES AT CYCLES 1,2,3 WAS 135 MG; CYCLE 4,5,6 WAS 110 MG)
     Dates: start: 20120702, end: 20121015
  8. DOXORUBICIN HCL [Concomitant]
     Active Substance: DOXORUBICIN HYDROCHLORIDE
     Dosage: UNK
  9. TAXOTERE [Suspect]
     Active Substance: DOCETAXEL
     Indication: BREAST CANCER FEMALE
     Dosage: 135 MG, CYCLIC (EVERY 3 WEEKS FOR 6 CYCLES AT CYCLES 1,2,3 WAS 135 MG; CYCLE 4,5,6 WAS 110 MG)
     Dates: start: 20120702, end: 20121015

REACTIONS (8)
  - Hair disorder [Not Recovered/Not Resolved]
  - Hair texture abnormal [Not Recovered/Not Resolved]
  - Hair colour changes [Not Recovered/Not Resolved]
  - Anxiety [Unknown]
  - Depression [Unknown]
  - Alopecia [Not Recovered/Not Resolved]
  - Madarosis [Not Recovered/Not Resolved]
  - Grief reaction [Unknown]

NARRATIVE: CASE EVENT DATE: 20130415
